FAERS Safety Report 8916724 (Version 2)
Quarter: 2013Q1

REPORT INFORMATION
  Report Type: Spontaneous
  Country: US (occurrence: US)
  Receive Date: 20121120
  Receipt Date: 20130114
  Transmission Date: 20140127
  Serious: No
  Sender: FDA-Public Use
  Company Number: US-009507513-1211USA006217

PATIENT
  Age: 25 Year
  Sex: Female
  Weight: 57.6 kg

DRUGS (2)
  1. NEXPLANON [Suspect]
     Indication: CONTRACEPTION
     Dosage: UNK
     Dates: start: 20121024, end: 20121024
  2. NEXPLANON [Suspect]
     Dosage: UNK
     Dates: start: 20121024

REACTIONS (2)
  - Complication of device insertion [Unknown]
  - No adverse event [Unknown]
